FAERS Safety Report 9215063 (Version 1)
Quarter: 2013Q2

REPORT INFORMATION
  Report Type: Report from Study
  Country: US (occurrence: US)
  Receive Date: 20130405
  Receipt Date: 20130405
  Transmission Date: 20140414
  Serious: Yes (Hospitalization, Other)
  Sender: FDA-Public Use
  Company Number: US-ABBOTT-13P-163-1069800-00

PATIENT
  Sex: Male
  Weight: 83.99 kg

DRUGS (7)
  1. HUMIRA [Suspect]
     Indication: RHEUMATOID ARTHRITIS
     Dates: start: 2012
  2. HUMIRA [Suspect]
     Dates: start: 20130328
  3. UNKNOWN GOUT MEDICATION [Concomitant]
     Indication: CHONDROCALCINOSIS PYROPHOSPHATE
  4. UNKNOWN RHEUMATOID ARTHRITIS MEDICATIONS [Concomitant]
     Indication: RHEUMATOID ARTHRITIS
  5. UNKNOWN BLOOD PRESSURE MEDICATIONS [Concomitant]
     Indication: BLOOD PRESSURE
  6. UNKNOWN DIABETES MEDICATIONS [Concomitant]
     Indication: DIABETES MELLITUS
  7. UNKNOWN PAIN MEDICATIONS [Concomitant]
     Indication: PAIN

REACTIONS (13)
  - Skin ulcer [Unknown]
  - Dizziness [Recovered/Resolved]
  - Pain [Recovered/Resolved]
  - Nausea [Recovered/Resolved]
  - Chills [Recovered/Resolved]
  - Pyrexia [Recovered/Resolved]
  - Pain [Not Recovered/Not Resolved]
  - Nausea [Not Recovered/Not Resolved]
  - Dizziness [Not Recovered/Not Resolved]
  - Chills [Recovering/Resolving]
  - Pyrexia [Not Recovered/Not Resolved]
  - Exostosis [Unknown]
  - Blood glucose fluctuation [Unknown]
